FAERS Safety Report 5276162-3 (Version None)
Quarter: 2007Q1

REPORT INFORMATION
  Report Type: 
  Country: None (occurrence: None)
  Receive Date: 20070326
  Receipt Date: 20070321
  Transmission Date: 20070707
  Serious: Yes (Death)
  Sender: FDA-Public Use
  Company Number: ES-SHR-ES-2007-010062

PATIENT
  Age: 69 Year
  Sex: Male

DRUGS (1)
  1. ULTRAVIST / CLAROGRAF 300 (500 ML) [Suspect]
     Indication: COMPUTERISED TOMOGRAM THORAX
     Dosage: 75 ML, 1 DOSE
     Route: 042
     Dates: start: 20070320, end: 20070320

REACTIONS (1)
  - CARDIO-RESPIRATORY ARREST [None]
